FAERS Safety Report 4600729-6 (Version None)
Quarter: 2005Q1

REPORT INFORMATION
  Report Type: 
  Country: None (occurrence: None)
  Receive Date: 20050304
  Receipt Date: 20050222
  Transmission Date: 20050727
  Serious: Yes (Other)
  Sender: FDA-Public Use
  Company Number: 2005-00063

PATIENT
  Age: 69 Year
  Sex: Male

DRUGS (11)
  1. VELCADE [Suspect]
     Indication: MULTIPLE MYELOMA
     Dates: start: 20041119
  2. THYROXIN (LEVOTHYROXINE SODIUM) [Concomitant]
  3. RANITIDINE [Concomitant]
  4. UROMETHIN [Concomitant]
  5. SWEATOSAN (SALVIA) [Concomitant]
  6. RAMIPRIL [Concomitant]
  7. POTASSIUM ACETATE [Concomitant]
  8. OXYBUTYNIN CHLORIDE [Concomitant]
  9. MAGNESIUM (MAGNESIUM) [Concomitant]
  10. METOCLOPRAMIDE [Concomitant]
  11. MORPHINE (MORPHINE) [Concomitant]

REACTIONS (6)
  - ANXIETY [None]
  - DELIRIUM [None]
  - DISEASE PROGRESSION [None]
  - HALLUCINATIONS, MIXED [None]
  - NIGHTMARE [None]
  - PANIC ATTACK [None]
